FAERS Safety Report 7476340-9 (Version None)
Quarter: 2011Q2

REPORT INFORMATION
  Report Type: 
  Country: None (occurrence: None)
  Receive Date: 20110512
  Receipt Date: 20110503
  Transmission Date: 20111010
  Serious: Yes (Death, Hospitalization)
  Sender: FDA-Public Use
  Company Number: A0808735A

PATIENT
  Age: 74 Year
  Sex: Male

DRUGS (6)
  1. CLONIDINE [Concomitant]
  2. LISINOPRIL [Concomitant]
  3. GLUCOPHAGE [Concomitant]
  4. AVANDIA [Suspect]
     Dosage: 4MG PER DAY
     Route: 048
     Dates: start: 20050128, end: 20070530
  5. HYDROCHLOROTHIAZIDE [Concomitant]
  6. PROTONIX [Concomitant]

REACTIONS (11)
  - CEREBROVASCULAR ACCIDENT [None]
  - CARDIOGENIC SHOCK [None]
  - HEART INJURY [None]
  - ACUTE MYOCARDIAL INFARCTION [None]
  - CEREBROVASCULAR DISORDER [None]
  - MULTI-ORGAN FAILURE [None]
  - CORONARY ARTERY DISEASE [None]
  - PERIPHERAL VASCULAR DISORDER [None]
  - RENAL FAILURE ACUTE [None]
  - PERIPHERAL ISCHAEMIA [None]
  - CARDIAC ARREST [None]
